FAERS Safety Report 18967002 (Version 6)
Quarter: 2021Q3

REPORT INFORMATION
  Report Type: Spontaneous
  Country: US (occurrence: US)
  Receive Date: 20210304
  Receipt Date: 20210715
  Transmission Date: 20211014
  Serious: Yes (Other)
  Sender: FDA-Public Use
  Company Number: US-BIOVITRUM-2021US2201

PATIENT
  Age: 6 Year
  Sex: Male

DRUGS (6)
  1. ADVAIR HFA [Concomitant]
     Active Substance: FLUTICASONE PROPIONATE\SALMETEROL XINAFOATE
     Indication: PRODUCT USED FOR UNKNOWN INDICATION
  2. KINERET [Suspect]
     Active Substance: ANAKINRA
     Indication: SMITH-MAGENIS SYNDROME
     Route: 058
     Dates: start: 20210210
  3. KINERET [Suspect]
     Active Substance: ANAKINRA
     Route: 058
     Dates: start: 202101
  4. ALBUTEROL. [Concomitant]
     Active Substance: ALBUTEROL
     Indication: PRODUCT USED FOR UNKNOWN INDICATION
  5. KINERET [Suspect]
     Active Substance: ANAKINRA
     Indication: PYREXIA
     Route: 058
     Dates: start: 20210222, end: 20210226
  6. KINERET [Suspect]
     Active Substance: ANAKINRA
     Indication: RHEUMATOID ARTHRITIS
     Route: 058
     Dates: start: 20210401

REACTIONS (10)
  - Off label use [Recovered/Resolved]
  - Erythema [Unknown]
  - Feeling hot [Unknown]
  - Urticaria [Unknown]
  - Pyrexia [Recovering/Resolving]
  - Hypersensitivity [Unknown]
  - Dyspnoea [Unknown]
  - Injection site erythema [Unknown]
  - Anaphylactic shock [Unknown]
  - Crying [Unknown]

NARRATIVE: CASE EVENT DATE: 202101
